FAERS Safety Report 8347915-X (Version None)
Quarter: 2012Q2

REPORT INFORMATION
  Report Type: 
  Country: None (occurrence: None)
  Receive Date: 20120509
  Receipt Date: 20120424
  Transmission Date: 20120825
  Serious: Yes (Other)
  Sender: FDA-Public Use
  Company Number: ES-WATSON-2012-07258

PATIENT
  Age: 41 Year
  Sex: Male

DRUGS (2)
  1. METHYLPREDNISOLONE [Suspect]
     Indication: RENAL TRANSPLANT
     Dosage: 500 MG,  X 3 BOLUSES
     Route: 065
  2. CYCLOSPORINE [Suspect]
     Indication: RENAL TRANSPLANT
     Dosage: UNK
     Route: 065

REACTIONS (2)
  - DYSPHONIA [None]
  - INFECTION [None]
